FAERS Safety Report 4583383-1 (Version None)
Quarter: 2005Q1

REPORT INFORMATION
  Report Type: 
  Country: None (occurrence: None)
  Receive Date: 20050125
  Receipt Date: 20041006
  Transmission Date: 20050727
  Serious: No
  Sender: FDA-Public Use
  Company Number: USA041080439

PATIENT
  Age: 82 Year
  Sex: Female

DRUGS (8)
  1. FORTEO [Suspect]
     Indication: OSTEOPOROSIS
     Dates: start: 20040701
  2. METHOTREXATE [Concomitant]
  3. ARICEPT [Concomitant]
  4. ENBREL [Concomitant]
  5. ASPIRIN [Concomitant]
  6. TYLENOL (CAPLET) [Concomitant]
  7. FOSAMAX (ALENDRONATE SOIUM) [Concomitant]
  8. FOLIC ACID [Concomitant]

REACTIONS (3)
  - DIFFICULTY IN WALKING [None]
  - FATIGUE [None]
  - GAIT DISTURBANCE [None]
